FAERS Safety Report 12979653 (Version 1)
Quarter: 2016Q4

REPORT INFORMATION
  Report Type: Spontaneous
  Country: None (occurrence: US)
  Receive Date: 20161128
  Receipt Date: 20161128
  Transmission Date: 20170207
  Serious: No
  Sender: FDA-Public Use
  Company Number: US-SHEFFIELD PHARMACEUTICALS, LLC-1060106

PATIENT
  Sex: Male

DRUGS (1)
  1. DR. SHEFFIELD ANTI ITCH CREAM [Suspect]
     Active Substance: DIPHENHYDRAMINE HYDROCHLORIDE\ZINC ACETATE
     Route: 061

REACTIONS (1)
  - Skin exfoliation [Recovered/Resolved]
